FAERS Safety Report 8686359 (Version 3)
Quarter: 2013Q2

REPORT INFORMATION
  Report Type: Spontaneous
  Country: US (occurrence: US)
  Receive Date: 20120726
  Receipt Date: 20130603
  Transmission Date: 20140414
  Serious: No
  Sender: FDA-Public Use
  Company Number: US-ASTRAZENECA-2010SE44239

PATIENT
  Age: 33 Year
  Sex: Female
  Weight: 81.6 kg

DRUGS (35)
  1. SEROQUEL [Suspect]
     Indication: INSOMNIA
     Route: 048
     Dates: start: 2007, end: 20100825
  2. SEROQUEL [Suspect]
     Indication: BIPOLAR DISORDER
     Route: 048
     Dates: start: 2007, end: 20100825
  3. SEROQUEL [Suspect]
     Indication: BIPOLAR I DISORDER
     Route: 048
     Dates: start: 2007, end: 20100825
  4. SEROQUEL [Suspect]
     Indication: MOOD SWINGS
     Route: 048
     Dates: start: 2007, end: 20100825
  5. SEROQUEL [Suspect]
     Indication: DEPRESSION
     Route: 048
     Dates: start: 2007, end: 20100825
  6. SEROQUEL [Suspect]
     Indication: INSOMNIA
     Route: 048
     Dates: start: 2008
  7. SEROQUEL [Suspect]
     Indication: BIPOLAR DISORDER
     Route: 048
     Dates: start: 2008
  8. SEROQUEL [Suspect]
     Indication: BIPOLAR I DISORDER
     Route: 048
     Dates: start: 2008
  9. SEROQUEL [Suspect]
     Indication: MOOD SWINGS
     Route: 048
     Dates: start: 2008
  10. SEROQUEL [Suspect]
     Indication: DEPRESSION
     Route: 048
     Dates: start: 2008
  11. SEROQUEL [Suspect]
     Indication: INSOMNIA
     Route: 048
     Dates: start: 20100826
  12. SEROQUEL [Suspect]
     Indication: BIPOLAR DISORDER
     Route: 048
     Dates: start: 20100826
  13. SEROQUEL [Suspect]
     Indication: BIPOLAR I DISORDER
     Route: 048
     Dates: start: 20100826
  14. SEROQUEL [Suspect]
     Indication: MOOD SWINGS
     Route: 048
     Dates: start: 20100826
  15. SEROQUEL [Suspect]
     Indication: DEPRESSION
     Route: 048
     Dates: start: 20100826
  16. SEROQUEL [Suspect]
     Indication: INSOMNIA
     Route: 048
  17. SEROQUEL [Suspect]
     Indication: BIPOLAR DISORDER
     Route: 048
  18. SEROQUEL [Suspect]
     Indication: BIPOLAR I DISORDER
     Route: 048
  19. SEROQUEL [Suspect]
     Indication: MOOD SWINGS
     Route: 048
  20. SEROQUEL [Suspect]
     Indication: DEPRESSION
     Route: 048
  21. SEASONIQUE [Concomitant]
     Indication: CONTRACEPTION
  22. ZOCOR [Concomitant]
     Indication: HYPERLIPIDAEMIA
  23. ATENOLOL [Concomitant]
     Indication: BLOOD PRESSURE ABNORMAL
     Dosage: DAILY
     Route: 048
  24. ATENOLOL [Concomitant]
     Indication: HEADACHE
     Dosage: DAILY
     Route: 048
  25. ATENOLOL [Concomitant]
     Indication: MIGRAINE PROPHYLAXIS
     Dosage: DAILY
     Route: 048
  26. LORTAB [Concomitant]
     Indication: MIGRAINE PROPHYLAXIS
     Dosage: 7.5/500 MG
  27. LORTAB [Concomitant]
     Indication: FIBROMYALGIA
     Dosage: 7.5/500 MG
  28. LORTAB [Concomitant]
     Indication: NECK PAIN
     Dosage: 7.5/500 MG
  29. XANAX [Concomitant]
     Indication: PANIC ATTACK
     Route: 048
  30. XANAX [Concomitant]
     Indication: ANXIETY
     Route: 048
  31. PROVAIR INHALER [Concomitant]
     Dosage: PRN
     Route: 055
  32. PHENTERMINE [Concomitant]
     Indication: OBESITY
  33. SOMA [Concomitant]
     Indication: NECK PAIN
  34. PROMETHAZINE [Concomitant]
     Indication: NAUSEA
  35. SEASON BIRTH CONTROL PILL [Concomitant]
     Indication: DYSMENORRHOEA

REACTIONS (14)
  - Diabetes mellitus [Unknown]
  - Therapeutic response unexpected [Unknown]
  - Blood glucose decreased [Unknown]
  - Middle insomnia [Unknown]
  - Insomnia [Not Recovered/Not Resolved]
  - Weight decreased [Unknown]
  - Chills [Unknown]
  - Obsessive-compulsive disorder [Unknown]
  - Increased appetite [Unknown]
  - Somnolence [Unknown]
  - Vision blurred [Unknown]
  - Weight increased [Unknown]
  - Vomiting [Unknown]
  - Drug dose omission [Unknown]
